FAERS Safety Report 6886308 (Version 2)
Quarter: 2020Q3

REPORT INFORMATION
  Report Type: Report from Study
  Country: CA (occurrence: CA)
  Receive Date: 20090119
  Receipt Date: 20141003
  Transmission Date: 20201104
  Serious: Yes (Death, Hospitalization)
  Sender: FDA-Public Use
  Company Number: CA-ALLERGAN-0900547US

PATIENT
  Age: 81 Year
  Sex: Female

DRUGS (4)
  1. BOTULINUM TOXIN TYPE A ? GENERAL (9060X) [Suspect]
     Active Substance: BOTULINUM TOXIN TYPE A
     Dosage: 140 UNITS, SINGLE
     Route: 030
     Dates: start: 20080522, end: 20080522
  2. BOTULINUM TOXIN TYPE A ? GENERAL (9060X) [Suspect]
     Active Substance: BOTULINUM TOXIN TYPE A
     Dosage: UNK UNK, SINGLE
     Route: 030
     Dates: start: 20070830, end: 20070830
  3. BOTULINUM TOXIN TYPE A ? GENERAL (9060X) [Suspect]
     Active Substance: BOTULINUM TOXIN TYPE A
     Dosage: UNK, SINGLE
     Route: 030
     Dates: start: 20010705, end: 20010705
  4. BOTULINUM TOXIN TYPE A ? GENERAL (9060X) [Suspect]
     Active Substance: BOTULINUM TOXIN TYPE A
     Indication: TREMOR
     Dosage: 200 UNITS, SINGLE
     Route: 030
     Dates: start: 20091204, end: 20091204

REACTIONS (2)
  - Volvulus of small bowel [Fatal]
  - Dysphagia [Recovering/Resolving]

NARRATIVE: CASE EVENT DATE: 200812
